FAERS Safety Report 15371406 (Version 1)
Quarter: 2018Q3

REPORT INFORMATION
  Report Type: Spontaneous
  Country: US (occurrence: US)
  Receive Date: 20180905
  Receipt Date: 20180905
  Transmission Date: 20181010
  Serious: Yes (Other)
  Sender: FDA-Public Use
  Company Number: None

PATIENT
  Age: 37 Year
  Sex: Male
  Weight: 69.75 kg

DRUGS (3)
  1. LANTUS SOLOSTAR [Suspect]
     Active Substance: INSULIN GLARGINE
     Indication: TYPE 1 DIABETES MELLITUS
     Dosage: ?          QUANTITY:1 300 UNITS PER PEN;?
     Route: 058
     Dates: start: 19851205, end: 20180505
  2. FREESTYLE LITE TESTING MACHINE [Concomitant]
  3. HUMOLOG INSULIN PREFILLED PENS [Concomitant]

REACTIONS (3)
  - Suspected product tampering [None]
  - Product container seal issue [None]
  - Drug dose omission [None]

NARRATIVE: CASE EVENT DATE: 20180712
